FAERS Safety Report 24141293 (Version 1)
Quarter: 2024Q3

REPORT INFORMATION
  Report Type: Spontaneous
  Country: US (occurrence: US)
  Receive Date: 20240726
  Receipt Date: 20240726
  Transmission Date: 20241016
  Serious: No
  Sender: BAXTER
  Company Number: US-BAXTER-2024BAX022005

PATIENT
  Sex: Female

DRUGS (1)
  1. TISSEEL FROZEN [Suspect]
     Active Substance: FIBRINOGEN HUMAN\THROMBIN HUMAN
     Indication: Haemostasis
     Dosage: UNK
     Route: 065
     Dates: start: 20240416, end: 20240416

REACTIONS (4)
  - Rash [Unknown]
  - Breast swelling [Unknown]
  - Breast discomfort [Not Recovered/Not Resolved]
  - Erythema [Not Recovered/Not Resolved]

NARRATIVE: CASE EVENT DATE: 20240429
